FAERS Safety Report 6177526-6 (Version None)
Quarter: 2009Q2

REPORT INFORMATION
  Report Type: 
  Country: None (occurrence: None)
  Receive Date: 20090504
  Receipt Date: 20090430
  Transmission Date: 20091009
  Serious: No
  Sender: FDA-Public Use
  Company Number: US-B.I. PHARMACEUTICALS,INC./RIDGEFIELD-2009-BP-04251BP

PATIENT
  Age: 47 Year
  Sex: Male
  Weight: 73.03 kg

DRUGS (2)
  1. MIRAPEX [Suspect]
     Indication: RESTLESS LEGS SYNDROME
     Dates: start: 20090330, end: 20090402
  2. DIPROLENE AF [Concomitant]
     Indication: UNEVALUABLE EVENT
     Dates: start: 20090330

REACTIONS (1)
  - OEDEMA PERIPHERAL [None]
